FAERS Safety Report 4562947-5 (Version None)
Quarter: 2005Q1

REPORT INFORMATION
  Report Type: 
  Country: None (occurrence: None)
  Receive Date: 20050121
  Receipt Date: 20041228
  Transmission Date: 20050727
  Serious: No
  Sender: FDA-Public Use
  Company Number: JP_041205504

PATIENT
  Age: 2 Week
  Sex: Female
  Weight: 4 kg

DRUGS (1)
  1. VANCOMYCIN HYDROCHLORIDE [Suspect]
     Indication: STAPHYLOCOCCAL INFECTION
     Dosage: 35 MG DAY
     Route: 042
     Dates: start: 20041026, end: 20041026

REACTIONS (1)
  - RED MAN SYNDROME [None]
